FAERS Safety Report 12111233 (Version 1)
Quarter: 2016Q1

REPORT INFORMATION
  Report Type: Spontaneous
  Country: US (occurrence: US)
  Receive Date: 20160224
  Receipt Date: 20160224
  Transmission Date: 20160526
  Serious: No
  Sender: FDA-Public Use
  Company Number: US-JAZZ-2015-US-009156

PATIENT
  Age: 50 Year
  Sex: Female

DRUGS (8)
  1. PRIALT [Suspect]
     Active Substance: ZICONOTIDE ACETATE
     Indication: SPINAL PAIN
     Dosage: UNK UNK, QH
     Route: 037
     Dates: start: 20150609
  2. PRIALT [Suspect]
     Active Substance: ZICONOTIDE ACETATE
     Dosage: 0.133 ?G, QH
     Route: 037
  3. NEURONTIN [Concomitant]
     Active Substance: GABAPENTIN
  4. DILAUDID [Concomitant]
     Active Substance: HYDROMORPHONE HYDROCHLORIDE
  5. PRIALT [Suspect]
     Active Substance: ZICONOTIDE ACETATE
     Dosage: 0.208 ?G, QH
     Route: 037
     Dates: start: 201506
  6. PRIALT [Suspect]
     Active Substance: ZICONOTIDE ACETATE
     Dosage: 0.198 ?G, QH
     Route: 037
     Dates: start: 20150616
  7. PRIALT [Suspect]
     Active Substance: ZICONOTIDE ACETATE
     Indication: COMPLEX REGIONAL PAIN SYNDROME
     Dosage: UNK ?G, QH
     Route: 037
  8. PRIALT [Suspect]
     Active Substance: ZICONOTIDE ACETATE
     Dosage: 0.146 ?G, QH
     Route: 037
     Dates: start: 20150709

REACTIONS (6)
  - Abnormal behaviour [Recovered/Resolved]
  - Cognitive disorder [Not Recovered/Not Resolved]
  - Confusional state [Recovering/Resolving]
  - Intentional product use issue [Recovered/Resolved]
  - Aphasia [Not Recovered/Not Resolved]
  - Tangentiality [Recovering/Resolving]

NARRATIVE: CASE EVENT DATE: 201506
